FAERS Safety Report 8376685-4 (Version None)
Quarter: 2012Q1

REPORT INFORMATION
  Report Type: 
  Country: None (occurrence: None)
  Receive Date: 20120323
  Receipt Date: 20110308
  Transmission Date: 20120608
  Serious: Yes (Disabling, Other)
  Sender: FDA-Public Use
  Company Number: 163-21880-10120669

PATIENT
  Age: 60 Year
  Sex: Female

DRUGS (3)
  1. REVLIMID [Suspect]
     Indication: MYELOFIBROSIS
     Dosage: 15 MG, 1 IN 1 D, PO, 10 MG, 1 IN 1 D, PO, 15 MG, 1 IN 1 D, PO
     Route: 048
     Dates: start: 20091201
  2. REVLIMID [Suspect]
     Indication: MYELOFIBROSIS
     Dosage: 15 MG, 1 IN 1 D, PO, 10 MG, 1 IN 1 D, PO, 15 MG, 1 IN 1 D, PO
     Route: 048
     Dates: start: 20080501
  3. REVLIMID [Suspect]
     Indication: MYELOFIBROSIS
     Dosage: 15 MG, 1 IN 1 D, PO, 10 MG, 1 IN 1 D, PO, 15 MG, 1 IN 1 D, PO
     Route: 048
     Dates: start: 20090801

REACTIONS (3)
  - ANAEMIA [None]
  - HYPOAESTHESIA [None]
  - NO THERAPEUTIC RESPONSE [None]
